FAERS Safety Report 17742164 (Version 1)
Quarter: 2020Q2

REPORT INFORMATION
  Report Type: Spontaneous
  Country: DE (occurrence: DE)
  Receive Date: 20200504
  Receipt Date: 20200504
  Transmission Date: 20200714
  Serious: Yes (Hospitalization)
  Sender: FDA-Public Use
  Company Number: DE-AMNEAL PHARMACEUTICALS-2020-AMRX-01247

PATIENT
  Age: 35 Year
  Sex: Male

DRUGS (3)
  1. METHITEST [Suspect]
     Active Substance: METHYLTESTOSTERONE
     Dosage: 1000 MILLIGRAM EVERY 3 MONTHS
     Route: 065
  2. MIDAZOLAM. [Concomitant]
     Active Substance: MIDAZOLAM
     Indication: SEDATIVE THERAPY
     Route: 065
  3. METHITEST [Suspect]
     Active Substance: METHYLTESTOSTERONE
     Indication: TRANSGENDER HORMONAL THERAPY
     Dosage: 1000 MILLIGRAM, 1 /MONTH
     Route: 065
     Dates: start: 2011, end: 2012

REACTIONS (2)
  - Coronary artery embolism [Recovered/Resolved]
  - Acute myocardial infarction [Recovered/Resolved]
